FAERS Safety Report 11680080 (Version 3)
Quarter: 2015Q4

REPORT INFORMATION
  Report Type: Spontaneous
  Country: US (occurrence: US)
  Receive Date: 20151027
  Receipt Date: 20151110
  Transmission Date: 20160304
  Serious: No
  Sender: FDA-Public Use
  Company Number: US-ELI_LILLY_AND_COMPANY-US201010004695

PATIENT
  Age: 57 Year
  Sex: Female

DRUGS (3)
  1. FORTEO [Suspect]
     Active Substance: TERIPARATIDE
     Dosage: 20 UG, QD
     Dates: end: 201203
  2. FORTEO [Suspect]
     Active Substance: TERIPARATIDE
     Dosage: 20 UG, QD
     Dates: end: 201201
  3. FORTEO [Suspect]
     Active Substance: TERIPARATIDE
     Indication: OSTEOPOROSIS
     Dosage: 20 UG, QD
     Dates: start: 20101015

REACTIONS (9)
  - Malaise [Not Recovered/Not Resolved]
  - Bone pain [Unknown]
  - Pain [Not Recovered/Not Resolved]
  - Arthralgia [Unknown]
  - Nausea [Recovered/Resolved]
  - Muscle spasms [Not Recovered/Not Resolved]
  - Bronchitis [Not Recovered/Not Resolved]
  - Fatigue [Unknown]
  - Intentional product misuse [Unknown]

NARRATIVE: CASE EVENT DATE: 20101015
